FAERS Safety Report 13553735 (Version 1)
Quarter: 2017Q2

REPORT INFORMATION
  Report Type: Spontaneous
  Country: US (occurrence: US)
  Receive Date: 20170517
  Receipt Date: 20170517
  Transmission Date: 20170830
  Serious: No
  Sender: FDA-Public Use
  Company Number: US-VERTEX PHARMACEUTICALS-2017-002618

PATIENT
  Sex: Female
  Weight: 54 kg

DRUGS (37)
  1. SYNTHROID [Concomitant]
     Active Substance: LEVOTHYROXINE SODIUM
  2. PRILOSEC [Concomitant]
     Active Substance: OMEPRAZOLE MAGNESIUM
  3. NORVASC [Concomitant]
     Active Substance: AMLODIPINE BESYLATE
  4. AZITHROMYCIN ANHYDROUS. [Concomitant]
     Active Substance: AZITHROMYCIN ANHYDROUS
  5. NEXIUM [Concomitant]
     Active Substance: ESOMEPRAZOLE MAGNESIUM
  6. PLAVIX [Concomitant]
     Active Substance: CLOPIDOGREL BISULFATE
  7. ALBUTEROL. [Concomitant]
     Active Substance: ALBUTEROL
  8. ASPIRIN. [Concomitant]
     Active Substance: ASPIRIN
  9. SINGULAIR [Concomitant]
     Active Substance: MONTELUKAST SODIUM
  10. COREG [Concomitant]
     Active Substance: CARVEDILOL
  11. CREON [Concomitant]
     Active Substance: PANCRELIPASE AMYLASE\PANCRELIPASE LIPASE\PANCRELIPASE PROTEASE
  12. LIPITOR [Concomitant]
     Active Substance: ATORVASTATIN CALCIUM
  13. FOLIC ACID. [Concomitant]
     Active Substance: FOLIC ACID
  14. FERROUS SULFATE. [Concomitant]
     Active Substance: FERROUS SULFATE
  15. PULMOZYME [Concomitant]
     Active Substance: DORNASE ALFA
  16. COUMADIN [Concomitant]
     Active Substance: WARFARIN SODIUM
  17. FLONASE [Concomitant]
     Active Substance: FLUTICASONE PROPIONATE
  18. TOPROL XL [Concomitant]
     Active Substance: METOPROLOL SUCCINATE
  19. COLISTIN SULFATE [Concomitant]
     Active Substance: COLISTIN SULFATE
  20. ATENOLOL. [Concomitant]
     Active Substance: ATENOLOL
  21. POTASSIUM [Concomitant]
     Active Substance: POTASSIUM
  22. SYMBICORT [Concomitant]
     Active Substance: BUDESONIDE\FORMOTEROL FUMARATE DIHYDRATE
  23. METOPROLOL. [Concomitant]
     Active Substance: METOPROLOL
  24. PROCARDIA [Concomitant]
     Active Substance: NIFEDIPINE
  25. ZYRTEC [Concomitant]
     Active Substance: CETIRIZINE HYDROCHLORIDE
  26. TOBI [Concomitant]
     Active Substance: TOBRAMYCIN
  27. VIAGRA [Concomitant]
     Active Substance: SILDENAFIL CITRATE
  28. ADVAIR HFA [Concomitant]
     Active Substance: FLUTICASONE PROPIONATE\SALMETEROL XINAFOATE
  29. SPIRIVA [Concomitant]
     Active Substance: TIOTROPIUM BROMIDE MONOHYDRATE
  30. PROTONIX [Concomitant]
     Active Substance: PANTOPRAZOLE SODIUM
  31. ORKAMBI [Suspect]
     Active Substance: IVACAFTOR\LUMACAFTOR
     Indication: CYSTIC FIBROSIS
     Dosage: 2 DF, BID
     Route: 048
     Dates: start: 201508
  32. LASIX [Concomitant]
     Active Substance: FUROSEMIDE
  33. CALCIUM [Concomitant]
     Active Substance: CALCIUM
  34. LISINOPRIL. [Concomitant]
     Active Substance: LISINOPRIL
  35. SPIRONOLACTONE. [Concomitant]
     Active Substance: SPIRONOLACTONE
  36. ZOCOR [Concomitant]
     Active Substance: SIMVASTATIN
  37. DIGOXIN. [Concomitant]
     Active Substance: DIGOXIN

REACTIONS (1)
  - Infection [Unknown]
